FAERS Safety Report 9951161 (Version 2)
Quarter: 2014Q1

REPORT INFORMATION
  Report Type: Spontaneous
  Country: PR (occurrence: PR)
  Receive Date: 20140304
  Receipt Date: 20140304
  Transmission Date: 20141002
  Serious: No
  Sender: FDA-Public Use
  Company Number: PR-ABBVIE-12P-131-0903815-00

PATIENT
  Sex: Female
  Weight: 122.13 kg

DRUGS (9)
  1. HUMIRA 40 MG/0.8 ML PEN [Suspect]
     Indication: RHEUMATOID ARTHRITIS
     Route: 058
     Dates: start: 2010, end: 201202
  2. HUMIRA 40 MG/0.8 ML PEN [Suspect]
     Route: 058
     Dates: start: 201301
  3. LOSARTAN [Concomitant]
     Indication: HYPERTENSION
     Route: 048
     Dates: start: 2002
  4. METOPROLOL [Concomitant]
     Indication: HYPERTENSION
     Route: 048
     Dates: start: 2002
  5. HIDROCLOROTIAZIDA [Concomitant]
     Indication: HYPERTENSION
     Route: 048
  6. INTEGRA [Concomitant]
     Indication: HAEMOGLOBIN
     Route: 048
  7. TRAMADOL [Concomitant]
     Indication: PAIN
     Route: 048
  8. ARAVA [Concomitant]
     Indication: PAIN
     Route: 048
  9. PREDNISONE [Concomitant]
     Indication: PAIN
     Route: 048

REACTIONS (1)
  - Haemoglobin decreased [Not Recovered/Not Resolved]
